FAERS Safety Report 22636817 (Version 1)
Quarter: 2023Q2

REPORT INFORMATION
  Report Type: Spontaneous
  Country: CN (occurrence: CN)
  Receive Date: 20230626
  Receipt Date: 20230626
  Transmission Date: 20230721
  Serious: Yes (Other)
  Sender: FDA-Public Use
  Company Number: None

PATIENT
  Age: 50 Year
  Sex: Male
  Weight: 53 kg

DRUGS (2)
  1. CAPECITABINE [Suspect]
     Active Substance: CAPECITABINE
     Indication: Rectal adenocarcinoma
     Dosage: XELOX REGIMEN IN 3-WEEK TREATMENT CYCLES.1000 MG/M2 TWICE DAILY?(EVENING OF DAY 1 TO DAY 15 MORNI...
     Route: 048
  2. OXALIPLATIN [Suspect]
     Active Substance: OXALIPLATIN
     Indication: Rectal adenocarcinoma
     Dosage: XELOX REGIMEN IN 3-WEEK TREATMENT CYCLES, 130 MG/M2 (DAY 1)
     Route: 042

REACTIONS (1)
  - Hepatic cirrhosis [Recovering/Resolving]
